FAERS Safety Report 5938474-7 (Version None)
Quarter: 2008Q4

REPORT INFORMATION
  Report Type: 
  Country: None (occurrence: None)
  Receive Date: 20081103
  Receipt Date: 20081002
  Transmission Date: 20090506
  Serious: Yes (Other)
  Sender: FDA-Public Use
  Company Number: US-BRACCO-001926

PATIENT
  Age: 45 Year
  Sex: Male

DRUGS (3)
  1. PROHANCE [Suspect]
     Indication: DIAGNOSTIC PROCEDURE
     Route: 042
     Dates: start: 20070402, end: 20070402
  2. OMNISCAN [Suspect]
     Indication: DIAGNOSTIC PROCEDURE
     Route: 042
     Dates: start: 20060930, end: 20060930
  3. MAGNEVIST [Suspect]
     Indication: DIAGNOSTIC PROCEDURE
     Route: 065
     Dates: start: 20070423, end: 20070423

REACTIONS (1)
  - NO ADVERSE EVENT [None]
